FAERS Safety Report 21818481 (Version 1)
Quarter: 2023Q1

REPORT INFORMATION
  Report Type: Spontaneous
  Country: US (occurrence: US)
  Receive Date: 20230104
  Receipt Date: 20230104
  Transmission Date: 20230418
  Serious: Yes (Other)
  Sender: FDA-Public Use
  Company Number: US-COOPERSURGICAL, INC.-US-2022CPS003282

PATIENT
  Age: 19 Year
  Sex: Female
  Weight: 64.853 kg

DRUGS (4)
  1. PARAGARD T 380A [Suspect]
     Active Substance: COPPER
     Indication: Product used for unknown indication
     Dosage: UNK
     Route: 015
     Dates: start: 20220801, end: 20220831
  2. MIRTAZAPINE [Concomitant]
     Active Substance: MIRTAZAPINE
     Indication: Depression
     Route: 065
  3. LORAZEPAM [Concomitant]
     Active Substance: LORAZEPAM
     Indication: Anxiety
     Route: 065
  4. ALBUTEROL [Concomitant]
     Active Substance: ALBUTEROL
     Indication: Asthma
     Route: 065

REACTIONS (2)
  - Embedded device [Recovered/Resolved]
  - Device dislocation [Recovered/Resolved]

NARRATIVE: CASE EVENT DATE: 20220831
